FAERS Safety Report 17557796 (Version 1)
Quarter: 2020Q1

REPORT INFORMATION
  Report Type: Spontaneous
  Country: US (occurrence: US)
  Receive Date: 20200318
  Receipt Date: 20200318
  Transmission Date: 20200409
  Serious: Yes (Death, Other)
  Sender: FDA-Public Use
  Company Number: US-PURDUE PHARMA-USA-2020-0150324

PATIENT
  Sex: Male

DRUGS (1)
  1. MS CONTIN [Suspect]
     Active Substance: MORPHINE SULFATE
     Indication: PAIN
     Dosage: 600 MG, UNK
     Route: 048

REACTIONS (8)
  - Male sexual dysfunction [Unknown]
  - Completed suicide [Fatal]
  - Drug withdrawal syndrome [Unknown]
  - Drug tolerance increased [Unknown]
  - Substance use disorder [Unknown]
  - Drug dependence [Unknown]
  - Seizure [Unknown]
  - Hypersomnia [Unknown]
